FAERS Safety Report 7558352-X (Version None)
Quarter: 2011Q2

REPORT INFORMATION
  Report Type: 
  Country: None (occurrence: None)
  Receive Date: 20110620
  Receipt Date: 20110615
  Transmission Date: 20111010
  Serious: Yes (Death)
  Sender: FDA-Public Use
  Company Number: PHHY2011SA52572

PATIENT
  Age: 53 Year
  Sex: Male
  Weight: 58 kg

DRUGS (8)
  1. IRINOTECAN HYDROCHLORIDE [Suspect]
     Indication: HEPATIC CANCER METASTATIC
     Dosage: 125 MG/M2, UNK
     Route: 042
  2. IRINOTECAN HYDROCHLORIDE [Suspect]
     Dosage: 150 MG, UNK
  3. PANITUMUMAB [Suspect]
     Indication: HEPATIC CANCER METASTATIC
     Dosage: 3.5 MG/KG, UNK
  4. VALSARTAN [Concomitant]
     Indication: HYPERTENSION
  5. PANITUMUMAB [Suspect]
     Dosage: 1.75 MG/KG, UNK
  6. GLICLAZIDE [Concomitant]
     Indication: TYPE 2 DIABETES MELLITUS
     Dosage: UNK
  7. ATORVASTATIN [Concomitant]
     Indication: HYPERLIPIDAEMIA
  8. SPIRONOLACTONE [Concomitant]
     Indication: MALIGNANT ASCITES

REACTIONS (3)
  - EJECTION FRACTION DECREASED [None]
  - CARDIAC ARREST [None]
  - VENTRICULAR HYPOKINESIA [None]
